FAERS Safety Report 7000772-6 (Version None)
Quarter: 2010Q3

REPORT INFORMATION
  Report Type: 
  Country: None (occurrence: None)
  Receive Date: 20100920
  Receipt Date: 20090911
  Transmission Date: 20110219
  Serious: Yes (Other)
  Sender: FDA-Public Use
  Company Number: US-ASTRAZENECA-2009SE12869

PATIENT
  Age: 51 Year
  Sex: Male
  Weight: 113.4 kg

DRUGS (5)
  1. SEROQUEL [Suspect]
     Indication: DEPRESSION
     Route: 048
     Dates: start: 20070101, end: 20090101
  2. ROZEREM [Concomitant]
  3. NEFAZODONE HCL [Concomitant]
  4. CLONAZEPAM [Concomitant]
  5. LEXAPRO [Concomitant]

REACTIONS (6)
  - BLOOD CHOLESTEROL INCREASED [None]
  - BLOOD TRIGLYCERIDES INCREASED [None]
  - DIABETES MELLITUS [None]
  - HYPERLIPIDAEMIA [None]
  - OBESITY [None]
  - PANCREATITIS [None]
